FAERS Safety Report 6858562-0 (Version None)
Quarter: 2010Q3

REPORT INFORMATION
  Report Type: 
  Country: None (occurrence: None)
  Receive Date: 20100719
  Receipt Date: 20080422
  Transmission Date: 20110219
  Serious: No
  Sender: FDA-Public Use
  Company Number: US-PFIZER INC-2008013735

PATIENT
  Sex: Male
  Weight: 72.6 kg

DRUGS (8)
  1. CHANTIX [Suspect]
     Indication: SMOKING CESSATION THERAPY
     Dates: start: 20070801
  2. PROMETHAZINE [Concomitant]
  3. NEXIUM [Concomitant]
  4. MARINOL [Concomitant]
  5. PERCOCET [Concomitant]
  6. LUNESTA [Concomitant]
  7. ALBUTEROL [Concomitant]
  8. COMBIVENT [Concomitant]

REACTIONS (2)
  - DRUG INTOLERANCE [None]
  - FEELING ABNORMAL [None]
